FAERS Safety Report 4835426-5 (Version None)
Quarter: 2005Q4

REPORT INFORMATION
  Report Type: 
  Country: None (occurrence: None)
  Receive Date: 20051118
  Receipt Date: 20051107
  Transmission Date: 20060501
  Serious: Yes (Life-Threatening, Hospitalization)
  Sender: FDA-Public Use
  Company Number: GXKR2005GB01741

PATIENT
  Age: 43 Year
  Sex: Male

DRUGS (8)
  1. AMLODIPINE [Suspect]
     Indication: INCORRECT DOSE ADMINISTERED
     Dosage: 560 MG, ONCE/SINGLE , ORAL
     Route: 048
  2. CITALOPRAM (NGX)(CITALOPRAM)UNIKOWN [Suspect]
     Indication: INCORRECT DOSE ADMINISTERED
     Dosage: 280 MG
  3. FLUOXETINE [Suspect]
     Indication: INCORRECT DOSE ADMINISTERED
     Dosage: 600 MG
  4. ASPIRIN [Suspect]
     Indication: INCORRECT DOSE ADMINISTERED
     Dosage: 7.5 G
  5. PERINDOPRIL (PERINDOPRIL) [Suspect]
     Indication: INCORRECT DOSE ADMINISTERED
     Dosage: 120 MG
  6. FOLIC ACID [Suspect]
     Indication: INCORRECT DOSE ADMINISTERED
     Dosage: 30 TABLETS, ORAL
     Route: 048
  7. PARACETAMOL (PARACETAMOL) [Suspect]
     Indication: INCORRECT DOSE ADMINISTERED
     Dosage: 16 G
  8. ALCOHOL (ETHANOL) [Suspect]

REACTIONS (13)
  - BLOOD POTASSIUM DECREASED [None]
  - CARDIOTOXICITY [None]
  - CIRCULATORY COLLAPSE [None]
  - DEPRESSED LEVEL OF CONSCIOUSNESS [None]
  - FALL [None]
  - GENERAL PHYSICAL HEALTH DETERIORATION [None]
  - GLASGOW COMA SCALE ABNORMAL [None]
  - HAEMODYNAMIC INSTABILITY [None]
  - HEART RATE DECREASED [None]
  - HYPOTENSION [None]
  - METABOLIC ACIDOSIS [None]
  - MULTIPLE DRUG OVERDOSE INTENTIONAL [None]
  - RENAL FAILURE ACUTE [None]
